FAERS Safety Report 26191963 (Version 1)
Quarter: 2025Q4

REPORT INFORMATION
  Report Type: Spontaneous
  Country: EU (occurrence: EU)
  Receive Date: 20251223
  Receipt Date: 20251223
  Transmission Date: 20260118
  Serious: Yes (Other)
  Sender: OTSUKA
  Company Number: EU-OTSUKA-2025_030858

PATIENT
  Age: 16 Year
  Sex: Male
  Weight: 67 kg

DRUGS (2)
  1. ARIPIPRAZOLE [Suspect]
     Active Substance: ARIPIPRAZOLE
     Indication: Psychotic symptom
     Dosage: 2.5-15 MG/DAY
     Route: 065
  2. BREXPIPRAZOLE [Suspect]
     Active Substance: BREXPIPRAZOLE
     Indication: Psychotic disorder
     Dosage: (2-1 MG)
     Route: 065

REACTIONS (5)
  - Psychotic disorder [Unknown]
  - Aphasia [Unknown]
  - Social anxiety disorder [Unknown]
  - Social avoidant behaviour [Not Recovered/Not Resolved]
  - Product use in unapproved indication [Unknown]
